FAERS Safety Report 17959705 (Version 1)
Quarter: 2020Q2

REPORT INFORMATION
  Report Type: Spontaneous
  Country: US (occurrence: US)
  Receive Date: 20200629
  Receipt Date: 20200629
  Transmission Date: 20200714
  Serious: Yes (Other)
  Sender: FDA-Public Use
  Company Number: US-MYLANLABS-2020M1058982

PATIENT
  Sex: Female

DRUGS (2)
  1. MAPROTILINE [Suspect]
     Active Substance: MAPROTILINE
     Indication: DEPRESSION
     Dosage: CANNOT GET IT EXACTLY AT 25 MG DUE TO INACCURATE CUT DAILY
     Route: 048
  2. MAPROTILINE [Suspect]
     Active Substance: MAPROTILINE
     Indication: DEPRESSION
     Dosage: CANNOT GET IT EXACTLY AT 25 MG DUE TO INACCURATE CUT DAILY
     Route: 048

REACTIONS (5)
  - Suicidal ideation [Recovered/Resolved]
  - Product availability issue [Not Recovered/Not Resolved]
  - Wrong technique in product usage process [Not Recovered/Not Resolved]
  - Intentional product misuse [Unknown]
  - Incorrect dose administered [Not Recovered/Not Resolved]
